FAERS Safety Report 21049100 (Version 1)
Quarter: 2022Q3

REPORT INFORMATION
  Report Type: Spontaneous
  Country: DE (occurrence: DE)
  Receive Date: 20220706
  Receipt Date: 20220706
  Transmission Date: 20221026
  Serious: Yes (Death, Other)
  Sender: FDA-Public Use
  Company Number: DE-EMBRYOTOX-202104559-B

PATIENT
  Sex: Male
  Weight: 1.28 kg

DRUGS (7)
  1. VENLAFAXINE [Suspect]
     Active Substance: VENLAFAXINE HYDROCHLORIDE
     Indication: Depression
     Dosage: 225 [MG/D (BIS 150 MG/D) ]/ REDUCTION TO 150 MG/D AT GW 23 1/7
     Route: 064
     Dates: start: 20210120, end: 20210731
  2. QUETIAPINE [Suspect]
     Active Substance: QUETIAPINE
     Indication: Depression
     Dosage: 25 MILLIGRAM, Q8H,75 [MG/D (25-25-25) ]
     Route: 064
     Dates: start: 20210323, end: 20210702
  3. LITHIUM CARBONATE [Suspect]
     Active Substance: LITHIUM CARBONATE
     Indication: Depression
     Dosage: 450 MILLIGRAM, BID,900 [MG/D (450-0-450) ]
     Route: 064
     Dates: start: 20210422, end: 20210731
  4. METOPROLOL [Concomitant]
     Active Substance: METOPROLOL
     Indication: Tachycardia foetal
     Dosage: 95 MILLIGRAM, QD,95 [MG/D (2X 47.5) ]
     Route: 064
     Dates: start: 20210701, end: 20210730
  5. FLECAINIDE [Concomitant]
     Active Substance: FLECAINIDE
     Indication: Tachycardia foetal
     Dosage: 800 MILLIGRAM, QD,800 [MG/D (BIS 400) ]
     Route: 064
     Dates: start: 20210701, end: 20210730
  6. AMIODARONE [Concomitant]
     Active Substance: AMIODARONE
     Indication: Tachycardia foetal
     Dosage: 2 DOSAGE FORM, TOTAL,2 DOSAGE FORM, ONCE,TWO APPLICATIONS
     Route: 064
     Dates: start: 20210726, end: 20210730
  7. Tavor [Concomitant]
     Indication: Depression
     Dosage: UNK
     Route: 064
     Dates: start: 20210421, end: 20210421

REACTIONS (6)
  - Foetal death [Fatal]
  - Ascites [Unknown]
  - Hydrops foetalis [Unknown]
  - Pericardial effusion [Unknown]
  - Tachycardia foetal [Unknown]
  - Foetal exposure during pregnancy [Unknown]
